FAERS Safety Report 21090974 (Version 2)
Quarter: 2022Q3

REPORT INFORMATION
  Report Type: Report from Study
  Country: US (occurrence: US)
  Receive Date: 20220716
  Receipt Date: 20220818
  Transmission Date: 20221027
  Serious: Yes (Other)
  Sender: FDA-Public Use
  Company Number: US-AUROBINDO-AUR-APL-2022-000982

PATIENT
  Sex: Male

DRUGS (9)
  1. BELINOSTAT [Suspect]
     Active Substance: BELINOSTAT
     Indication: Chondrosarcoma
     Dosage: 10050 MILLIGRAM
     Route: 065
     Dates: start: 20210111
  2. BELINOSTAT [Suspect]
     Active Substance: BELINOSTAT
     Dosage: 10050 MILLIGRAM
     Route: 065
     Dates: start: 20210208
  3. BELINOSTAT [Suspect]
     Active Substance: BELINOSTAT
     Dosage: 10050 MILLIGRAM
     Route: 065
     Dates: start: 20210308
  4. BELINOSTAT [Suspect]
     Active Substance: BELINOSTAT
     Dosage: 10050 MILLIGRAM
     Route: 065
     Dates: start: 20210405
  5. GUADECITABINE [Suspect]
     Active Substance: GUADECITABINE
     Indication: Product used for unknown indication
     Dosage: 450 MILLIGRAM
     Route: 065
  6. GUADECITABINE [Suspect]
     Active Substance: GUADECITABINE
     Dosage: 450 MILLIGRAM
     Route: 065
     Dates: start: 20210111
  7. GUADECITABINE [Suspect]
     Active Substance: GUADECITABINE
     Dosage: 450 MILLIGRAM
     Route: 065
     Dates: start: 20210208
  8. GUADECITABINE [Suspect]
     Active Substance: GUADECITABINE
     Dosage: 450 MILLIGRAM
     Route: 065
     Dates: start: 20210308
  9. GUADECITABINE [Suspect]
     Active Substance: GUADECITABINE
     Dosage: 450 MILLIGRAM
     Route: 065
     Dates: start: 20210405

REACTIONS (7)
  - Phlebitis infective [Unknown]
  - Disturbance in attention [Unknown]
  - Nausea [Unknown]
  - Fatigue [Unknown]
  - Insomnia [Unknown]
  - Injection site reaction [Unknown]
  - Pyrexia [Unknown]

NARRATIVE: CASE EVENT DATE: 20210111
